FAERS Safety Report 24713372 (Version 1)
Quarter: 2024Q4

REPORT INFORMATION
  Report Type: Spontaneous
  Country: US (occurrence: US)
  Receive Date: 20241209
  Receipt Date: 20241209
  Transmission Date: 20250115
  Serious: No
  Sender: REGENERON
  Company Number: US-REGENERON PHARMACEUTICALS, INC.-2024-034814

PATIENT
  Sex: Female

DRUGS (2)
  1. EYLEA [Suspect]
     Active Substance: AFLIBERCEPT
     Indication: Cataract
     Dosage: 1 MG, MAXIMUM Q5W (FORMULATION: UNKNOWN)
  2. EYLEA [Suspect]
     Active Substance: AFLIBERCEPT
     Indication: Glaucoma
     Dosage: 1 MG, 7-8 WEEKS (FORMULATION: UNKNOWN)

REACTIONS (4)
  - Incorrect dose administered [Unknown]
  - Off label use [Unknown]
  - Drug ineffective for unapproved indication [Unknown]
  - Drug effective for unapproved indication [Unknown]
